FAERS Safety Report 8277000-7 (Version None)
Quarter: 2012Q2

REPORT INFORMATION
  Report Type: 
  Country: None (occurrence: None)
  Receive Date: 20120412
  Receipt Date: 20120403
  Transmission Date: 20120825
  Serious: Yes (Other)
  Sender: FDA-Public Use
  Company Number: US-ROCHE-787502

PATIENT
  Sex: Male

DRUGS (1)
  1. ACCUTANE [Suspect]
     Indication: PRODUCT USED FOR UNKNOWN INDICATION
     Route: 065

REACTIONS (5)
  - CONDITION AGGRAVATED [None]
  - INJURY [None]
  - ASCITES [None]
  - PORTAL VEIN THROMBOSIS [None]
  - SMALL INTESTINAL RESECTION [None]
